FAERS Safety Report 24034563 (Version 1)
Quarter: 2024Q3

REPORT INFORMATION
  Report Type: Spontaneous
  Country: GB (occurrence: GB)
  Receive Date: 20240701
  Receipt Date: 20240701
  Transmission Date: 20241016
  Serious: Yes (Hospitalization)
  Sender: MYLAN
  Company Number: GB-MHRA-TPP43889929C10098427YC1718116938854

PATIENT
  Age: 79 Year
  Sex: Female
  Weight: 89 kg

DRUGS (18)
  1. DOXYCYCLINE [Suspect]
     Active Substance: DOXYCYCLINE\DOXYCYCLINE HYCLATE
     Indication: Product used for unknown indication
     Dosage: UNK (TWO NOW THEN ONE DAILY)
     Route: 065
     Dates: start: 20230731
  2. Depo medrone [Concomitant]
     Indication: Ill-defined disorder
     Dosage: 100 MILLIGRAM (USE AS DIRECTED - TWO NOW THEN ONE DAILY)
     Route: 065
     Dates: start: 20240410
  3. ASPIRIN [Concomitant]
     Active Substance: ASPIRIN
     Dosage: 1 DOSAGE FORM, QD (ONE TO BE TAKEN ONCE DAILY)
     Route: 065
     Dates: start: 20221229
  4. BECLOMETHASONE [Concomitant]
     Active Substance: BECLOMETHASONE
     Dosage: 4 DOSAGE FORM, QD (TWO SPRAYS INTO EACH NOSTRIL TWICE DAILY)
     Route: 065
     Dates: start: 20221229
  5. CARBOMER [Concomitant]
     Active Substance: CARBOMER
     Dosage: UNK (USE AS REQUIRED)
     Route: 065
     Dates: start: 20221229
  6. BUTYLSCOPOLAMINE BROMIDE [Concomitant]
     Active Substance: BUTYLSCOPOLAMINE BROMIDE
     Dosage: 2 DOSAGE FORM, QID (TWO TO BE TAKEN FOUR TIMES A DAY)
     Route: 065
     Dates: start: 20221229
  7. ISPAGHULA EXTRACT\PSYLLIUM [Concomitant]
     Active Substance: HERBALS\PLANTAGO OVATA SEED\PLANTAGO SEED
     Dosage: UNK (TAKE THE CONTENT OF ONE SACHET UPTO TWICE A D)
     Route: 065
     Dates: start: 20221229
  8. LANSOPRAZOLE [Concomitant]
     Active Substance: LANSOPRAZOLE
     Dosage: 1 DOSAGE FORM, QD (ONE TO BE TAKEN EACH MORNING)
     Route: 065
     Dates: start: 20221229
  9. ACETAMINOPHEN [Concomitant]
     Active Substance: ACETAMINOPHEN
     Dosage: 2 DOSAGE FORM, QID (TWO TO BE TAKEN EVERY 4-6 HOURS UP TO FOUR TIME)
     Route: 065
     Dates: start: 20221229
  10. PROCHLORPERAZINE [Concomitant]
     Active Substance: PROCHLORPERAZINE
     Dosage: 1 DOSAGE FORM, TID (ONE TO BE TAKEN UPTO THREE TIMES A DAY)
     Route: 065
     Dates: start: 20221229
  11. SIMVASTATIN [Concomitant]
     Active Substance: SIMVASTATIN
     Indication: Ill-defined disorder
     Dosage: 1 DOSAGE FORM, QD (ONE TO BE TAKEN ONCE DAILY)
     Route: 065
     Dates: start: 20221229
  12. CANDESARTAN [Concomitant]
     Active Substance: CANDESARTAN
     Indication: Ill-defined disorder
     Dosage: 1 DOSAGE FORM, QD (TAKE ONE TABLET ONCE A DAY)
     Route: 065
     Dates: start: 20230515
  13. PREDNISOLONE [Concomitant]
     Active Substance: PREDNISOLONE
     Indication: Ill-defined disorder
     Dosage: 30 MILLIGRAM (TAKE 30 MGS (6 TABLETS) FOR 10 DAYS)
     Route: 065
     Dates: start: 20230731
  14. FENBID [Concomitant]
     Indication: Ill-defined disorder
     Dosage: UNK (APPLY TO AFFECTED AREA AND SLIGHTY RUB IN)
     Route: 065
     Dates: start: 20230814
  15. BECLOMETHASONE DIPROPIONATE\FORMOTEROL FUMARATE\GLYCOPYRROLATE [Concomitant]
     Active Substance: BECLOMETHASONE DIPROPIONATE\FORMOTEROL FUMARATE\GLYCOPYRROLATE
     Indication: Ill-defined disorder
     Dosage: 2 DOSAGE FORM, BID (TWO PUFFS TO BE INHALED TWICE A DAY)
     Route: 065
     Dates: start: 20230904
  16. FYBOGEL [Concomitant]
     Active Substance: HERBALS\PLANTAGO OVATA SEED
     Indication: Ill-defined disorder
     Dosage: UNK (DISSOLVE THE CONTENTS OF ONE SACHET IN WATER)
     Route: 065
     Dates: start: 20231227
  17. ALBUTEROL [Concomitant]
     Active Substance: ALBUTEROL
     Indication: Ill-defined disorder
     Dosage: UNK, QID (TWO PUFFS TO BE INHALED UP TO FOUR TIMES A DAY)
     Route: 065
     Dates: start: 20240110
  18. RANITIDINE HYDROCHLORIDE [Concomitant]
     Active Substance: RANITIDINE HYDROCHLORIDE
     Indication: Ill-defined disorder
     Dosage: UNK (TAKE 10-20 MLS AFTER MEALS AND AT BEDTIME IF REQ)
     Route: 065
     Dates: start: 20240122

REACTIONS (3)
  - Malaise [Recovered/Resolved]
  - Dyspnoea [Recovered/Resolved]
  - Oedema [Unknown]

NARRATIVE: CASE EVENT DATE: 20240611
